FAERS Safety Report 10516355 (Version 1)
Quarter: 2014Q4

REPORT INFORMATION
  Report Type: Report from Study
  Country: FR (occurrence: DE)
  Receive Date: 20141014
  Receipt Date: 20141014
  Transmission Date: 20150528
  Serious: Yes (Hospitalization)
  Sender: FDA-Public Use
  Company Number: FR-MYLANLABS-2014M1006706

PATIENT

DRUGS (10)
  1. CYSTAGON [Suspect]
     Active Substance: CYSTEAMINE BITARTRATE
     Indication: CYSTINOSIS
     Dosage: UNK
     Route: 048
     Dates: start: 19970410
  2. CYSTAGON [Suspect]
     Active Substance: CYSTEAMINE BITARTRATE
     Dosage: 28 MG/KG, QD
     Route: 048
     Dates: start: 19970822, end: 19971110
  3. CYCLOSPORIN A [Concomitant]
     Active Substance: CYCLOSPORINE
  4. CYSTAGON [Suspect]
     Active Substance: CYSTEAMINE BITARTRATE
     Dosage: 36 MG/KG, QD
     Route: 048
     Dates: start: 19990125, end: 19990426
  5. CYSTAGON [Suspect]
     Active Substance: CYSTEAMINE BITARTRATE
     Dosage: 42 MG/KG, QD
     Dates: start: 19990426
  6. FK 506 [Concomitant]
     Active Substance: TACROLIMUS
  7. CYSTAGON [Suspect]
     Active Substance: CYSTEAMINE BITARTRATE
     Dosage: 42600 MG/KG, QD
     Route: 048
  8. CYSTAGON [Suspect]
     Active Substance: CYSTEAMINE BITARTRATE
     Dosage: UNK
     Dates: end: 19970624
  9. CYSTAGON [Suspect]
     Active Substance: CYSTEAMINE BITARTRATE
     Dosage: 33 MG/KG, QD
     Route: 048
     Dates: start: 19971110, end: 19990125
  10. AZATHIOPRINE. [Concomitant]
     Active Substance: AZATHIOPRINE

REACTIONS (6)
  - Decreased appetite [Recovered/Resolved]
  - Breath odour [Not Recovered/Not Resolved]
  - Drug ineffective [Recovered/Resolved]
  - Nervous system disorder [Recovered/Resolved]
  - Vomiting [Recovered/Resolved]
  - Therapeutic response unexpected [Recovered/Resolved]

NARRATIVE: CASE EVENT DATE: 19970403
